FAERS Safety Report 19411580 (Version 1)
Quarter: 2021Q2

REPORT INFORMATION
  Report Type: Spontaneous
  Country: US (occurrence: US)
  Receive Date: 20210614
  Receipt Date: 20210614
  Transmission Date: 20210717
  Serious: Yes (Other)
  Sender: FDA-Public Use
  Company Number: US-GLAXOSMITHKLINE-US2021GSK126164

PATIENT
  Sex: Female

DRUGS (6)
  1. RANITIDINE. [Suspect]
     Active Substance: RANITIDINE
     Indication: DYSPEPSIA
     Dosage: 75 MG, 2X 75 MG PER DAY OR 1X 150 MG PER DAY
     Route: 065
     Dates: start: 198501, end: 200001
  2. RANITIDINE. [Suspect]
     Active Substance: RANITIDINE
     Dosage: 150 MG, 2X 75 MG PER DAY OR 1X 150 MG PER DAY
     Route: 065
     Dates: start: 198501, end: 200001
  3. ZANTAC [Suspect]
     Active Substance: RANITIDINE HYDROCHLORIDE
     Indication: DYSPEPSIA
     Dosage: 75 MG, 75 MG 2X PER DAY OR 150 MG 1X PER DAY?
     Route: 065
     Dates: start: 198501, end: 200001
  4. ZANTAC [Suspect]
     Active Substance: RANITIDINE HYDROCHLORIDE
     Indication: DYSPEPSIA
     Dosage: 75 MG, 75 MG 2X PER DAY OR 150 MG 1X PER DAY?
     Route: 065
     Dates: start: 198501, end: 200001
  5. RANITIDINE. [Suspect]
     Active Substance: RANITIDINE
     Indication: DYSPEPSIA
     Dosage: 75 MG, 2X 75 MG PER DAY OR 1X 150 MG PER DAY
     Route: 065
     Dates: start: 198501, end: 200001
  6. RANITIDINE. [Suspect]
     Active Substance: RANITIDINE
     Dosage: 150 MG, 2X 75 MG PER DAY OR 1X 150 MG PER DAY
     Route: 065
     Dates: start: 198501, end: 200001

REACTIONS (1)
  - Breast cancer [Unknown]
